FAERS Safety Report 17578734 (Version 2)
Quarter: 2020Q1

REPORT INFORMATION
  Report Type: Not Available
  Country: US (occurrence: US)
  Receive Date: 20200325
  Receipt Date: 20200330
  Transmission Date: 20200409
  Serious: Yes (Death)
  Sender: FDA-Public Use
  Company Number: US-NEUROCRINE BIOSCIENCES INC.-2020NBI00929

PATIENT
  Age: 76 Year
  Sex: Male

DRUGS (16)
  1. INGREZZA [Suspect]
     Active Substance: VALBENAZINE
     Indication: TARDIVE DYSKINESIA
     Route: 048
  2. IMDUR [Concomitant]
     Active Substance: ISOSORBIDE MONONITRATE
  3. NOVOLOG MIX 70/30 [Concomitant]
     Active Substance: INSULIN ASPART
  4. VICODIN [Concomitant]
     Active Substance: ACETAMINOPHEN\HYDROCODONE BITARTRATE
  5. XIFAXAN [Concomitant]
     Active Substance: RIFAXIMIN
  6. PROZAC [Concomitant]
     Active Substance: FLUOXETINE HYDROCHLORIDE
  7. ATORVASTATIN [Concomitant]
     Active Substance: ATORVASTATIN
  8. SEROQUEL [Concomitant]
     Active Substance: QUETIAPINE FUMARATE
  9. DONEPEZIL. [Concomitant]
     Active Substance: DONEPEZIL
  10. WELLBUTRIN [Concomitant]
     Active Substance: BUPROPION HYDROCHLORIDE
  11. PROTONIX [Concomitant]
     Active Substance: PANTOPRAZOLE SODIUM
  12. ASPIRIN. [Concomitant]
     Active Substance: ASPIRIN
  13. MVI [Concomitant]
     Active Substance: VITAMINS
  14. LASIX [Concomitant]
     Active Substance: FUROSEMIDE
  15. NAMENDA [Concomitant]
     Active Substance: MEMANTINE HYDROCHLORIDE
  16. LORAZEPAM. [Concomitant]
     Active Substance: LORAZEPAM

REACTIONS (3)
  - Fall [Unknown]
  - Death [Fatal]
  - Dizziness [Unknown]

NARRATIVE: CASE EVENT DATE: 202003
